FAERS Safety Report 5581985-7 (Version None)
Quarter: 2008Q1

REPORT INFORMATION
  Report Type: 
  Country: None (occurrence: None)
  Receive Date: 20080104
  Receipt Date: 20080103
  Transmission Date: 20080703
  Serious: Yes (Congenital Anomaly)
  Sender: FDA-Public Use
  Company Number: FR-JNJFOC-20080100303

PATIENT
  Sex: Female
  Weight: 3.4 kg

DRUGS (1)
  1. HALDOL DECANOAS [Suspect]
     Indication: DRUG EXPOSURE DURING PREGNANCY

REACTIONS (3)
  - CRI DU CHAT SYNDROME [None]
  - DRUG EXPOSURE DURING PREGNANCY [None]
  - MICROGNATHIA [None]
